FAERS Safety Report 10379934 (Version 1)
Quarter: 2014Q3

REPORT INFORMATION
  Report Type: Spontaneous
  Country: IE (occurrence: FR)
  Receive Date: 20140813
  Receipt Date: 20140813
  Transmission Date: 20150326
  Serious: Yes (Hospitalization)
  Sender: FDA-Public Use
  Company Number: 2014SP004672

PATIENT
  Age: 38 Year
  Sex: Female
  Weight: 89 kg

DRUGS (13)
  1. TAXOTERE [Suspect]
     Active Substance: DOCETAXEL
     Indication: BREAST CANCER
     Dates: start: 20131230, end: 20140414
  2. OFLOCET /00731801/ [Suspect]
     Active Substance: OFLOXACIN
     Indication: URINARY TRACT INFECTION
     Dates: start: 201403, end: 20140324
  3. HERCEPTIN [Suspect]
     Active Substance: TRASTUZUMAB
     Indication: BREAST CANCER
     Dates: start: 20131230, end: 20140414
  4. OFLOCET /00731801/ [Suspect]
     Active Substance: OFLOXACIN
     Indication: BRONCHITIS
     Dates: start: 201403, end: 20140324
  5. SMECTA /07327601/ [Concomitant]
  6. ZOPHREN /00955301/ [Concomitant]
     Active Substance: ONDANSETRON
     Dates: start: 20131230
  7. ARANESP [Concomitant]
     Active Substance: DARBEPOETIN ALFA
  8. AUGMENTIN [Suspect]
     Active Substance: AMOXICILLIN\CLAVULANATE POTASSIUM
     Indication: URINARY TRACT INFECTION
     Dates: start: 201403, end: 20140324
  9. SOLU-MEDROL [Concomitant]
     Active Substance: METHYLPREDNISOLONE SODIUM SUCCINATE
     Dates: start: 20131230
  10. IRON SUCROSE [Concomitant]
     Active Substance: IRON SUCROSE
  11. CARBOPLATIN. [Suspect]
     Active Substance: CARBOPLATIN
     Indication: BREAST CANCER
     Dates: start: 20131230, end: 20140414
  12. AMOXICILLIN TRIHYDRATE [Concomitant]
     Active Substance: AMOXICILLIN
     Dates: start: 201402
  13. AUGMENTIN [Suspect]
     Active Substance: AMOXICILLIN\CLAVULANATE POTASSIUM
     Indication: BRONCHITIS
     Dates: start: 201403, end: 20140324

REACTIONS (10)
  - Nausea [Unknown]
  - Palmar-plantar erythrodysaesthesia syndrome [Recovered/Resolved]
  - Anaemia [Recovering/Resolving]
  - Abdominal pain [Unknown]
  - Chromaturia [Not Recovered/Not Resolved]
  - Haemolytic anaemia [Not Recovered/Not Resolved]
  - Hyperthermia [Unknown]
  - Diarrhoea [Recovered/Resolved]
  - Asthenia [Unknown]
  - Febrile bone marrow aplasia [Unknown]

NARRATIVE: CASE EVENT DATE: 20140326
